FAERS Safety Report 4816677-2 (Version None)
Quarter: 2005Q4

REPORT INFORMATION
  Report Type: 
  Country: None (occurrence: None)
  Receive Date: 20051031
  Receipt Date: 20051031
  Transmission Date: 20060501
  Serious: Yes (Life-Threatening)
  Sender: FDA-Public Use
  Company Number: None

PATIENT
  Age: 35 Year
  Sex: Female
  Weight: 94.8018 kg

DRUGS (2)
  1. TAXOTERE [Suspect]
     Indication: BREAST CANCER METASTATIC
     Dosage: 150 MG Q3 WK IV
     Route: 042
     Dates: start: 20050719, end: 20051012
  2. BEVACIZUMAB 15 MG/KG - GENENTECH [Suspect]
     Indication: BREAST CANCER METASTATIC
     Dosage: 1425 MG Q 3 WK IV
     Route: 042
     Dates: start: 20050719, end: 20051012

REACTIONS (3)
  - DYSPNOEA [None]
  - EJECTION FRACTION DECREASED [None]
  - VENTRICULAR DYSFUNCTION [None]
